FAERS Safety Report 21203101 (Version 1)
Quarter: 2022Q3

REPORT INFORMATION
  Report Type: Spontaneous
  Country: US (occurrence: US)
  Receive Date: 20220811
  Receipt Date: 20220811
  Transmission Date: 20221027
  Serious: No
  Sender: FDA-Public Use
  Company Number: US-OTSUKA-2021_029272

PATIENT
  Age: 23 Year
  Sex: Female

DRUGS (1)
  1. REXULTI [Suspect]
     Active Substance: BREXPIPRAZOLE
     Indication: Affective disorder
     Dosage: UNK
     Route: 065

REACTIONS (10)
  - Inflammation [Unknown]
  - Nervous system disorder [Unknown]
  - Loss of personal independence in daily activities [Unknown]
  - Blood test abnormal [Unknown]
  - Skin discolouration [Unknown]
  - Withdrawal syndrome [Unknown]
  - Pain [Unknown]
  - Weight increased [Unknown]
  - Product dose omission issue [Unknown]
  - Product use in unapproved indication [Unknown]

NARRATIVE: CASE EVENT DATE: 20210301
